FAERS Safety Report 8446393-X (Version None)
Quarter: 2012Q2

REPORT INFORMATION
  Report Type: 
  Country: None (occurrence: None)
  Receive Date: 20120618
  Receipt Date: 20120615
  Transmission Date: 20120825
  Serious: Yes (Life-Threatening)
  Sender: FDA-Public Use
  Company Number: DE-B.I. PHARMACEUTICALS,INC./RIDGEFIELD-2012-DE-01478DE

PATIENT
  Sex: Male

DRUGS (1)
  1. PRADAXA [Suspect]

REACTIONS (3)
  - GASTROINTESTINAL HAEMORRHAGE [None]
  - RENAL FAILURE [None]
  - PHARYNGEAL HAEMORRHAGE [None]
